FAERS Safety Report 13284370 (Version 1)
Quarter: 2017Q1

REPORT INFORMATION
  Report Type: Spontaneous
  Country: US (occurrence: US)
  Receive Date: 20170301
  Receipt Date: 20170301
  Transmission Date: 20170428
  Serious: No
  Sender: FDA-Public Use
  Company Number: US-INSYS THERAPEUTICS, INC-INS201608-000451

PATIENT
  Age: 47 Year
  Sex: Female

DRUGS (2)
  1. MORPHINE [Concomitant]
     Active Substance: MORPHINE
  2. SUBSYS [Suspect]
     Active Substance: FENTANYL
     Indication: LUMBOSACRAL RADICULOPATHY
     Route: 060
     Dates: start: 20160401

REACTIONS (3)
  - Flushing [Unknown]
  - Burning sensation [Unknown]
  - Hyperhidrosis [Unknown]

NARRATIVE: CASE EVENT DATE: 20160822
